FAERS Safety Report 6376944-0 (Version None)
Quarter: 2009Q3

REPORT INFORMATION
  Report Type: 
  Country: None (occurrence: None)
  Receive Date: 20090925
  Receipt Date: 20090915
  Transmission Date: 20100115
  Serious: Yes (Other)
  Sender: FDA-Public Use
  Company Number: PT-PFIZER INC-2009270476

PATIENT

DRUGS (15)
  1. SUNITINIB MALATE [Suspect]
     Indication: BREAST CANCER
     Dosage: 50 MG, 1X/DAY
     Route: 048
     Dates: start: 20090113, end: 20090126
  2. SUNITINIB MALATE [Suspect]
     Dosage: 37.5 MG, 1X/DAY
     Route: 048
     Dates: start: 20090207, end: 20090220
  3. SUNITINIB MALATE [Suspect]
     Dosage: 37.5 MG, 1X/DAY
     Route: 048
     Dates: start: 20090228, end: 20090313
  4. TAXOTERE [Suspect]
     Indication: BREAST CANCER
     Dosage: 75 MG/M2, UNK
     Route: 042
     Dates: start: 20090206, end: 20090206
  5. TAXOTERE [Suspect]
     Dosage: 75 MG/M2, UNK
     Route: 042
     Dates: start: 20090227, end: 20090227
  6. TAXOTERE [Suspect]
     Dosage: 75 MG/M2, UNK
     Route: 042
     Dates: start: 20090320, end: 20090320
  7. LOPERAMIDE [Concomitant]
     Indication: DIARRHOEA
     Dosage: 2 MG, 1X/DAY
     Route: 048
     Dates: start: 20090116, end: 20090116
  8. METOCLOPRAMIDE [Concomitant]
     Indication: NAUSEA
     Dosage: 10 MG, 4X/DAY
     Route: 048
     Dates: start: 20090116
  9. PARACETAMOL [Concomitant]
     Indication: PYREXIA
     Dosage: 1 G, 2X/DAY
     Dates: start: 20090309, end: 20090309
  10. IBUPROFEN [Concomitant]
     Indication: ODYNOPHAGIA
     Dosage: 600 MG, 2X/DAY
     Dates: start: 20090310
  11. AMOXICILLIN AND CLAVULANATE POTASSIUM [Concomitant]
     Indication: ODYNOPHAGIA
     Dosage: 625 MG, UNK
     Dates: start: 20090307
  12. CIPROFLOXACIN [Concomitant]
     Indication: ODYNOPHAGIA
     Dosage: 400 MG, UNK
     Dates: start: 20090317
  13. HYDROCORTISONE [Concomitant]
     Dosage: 100 MG, UNK
  14. RANITIDINE [Concomitant]
     Dosage: 50 MG, UNK
  15. CLEMASTINE [Concomitant]
     Dosage: 1 MG/ML, 2X/DAY

REACTIONS (5)
  - DIZZINESS [None]
  - DYSPNOEA [None]
  - ERYTHEMA [None]
  - HYPERSENSITIVITY [None]
  - VISUAL IMPAIRMENT [None]
